FAERS Safety Report 5932753-5 (Version None)
Quarter: 2008Q4

REPORT INFORMATION
  Report Type: 
  Country: None (occurrence: None)
  Receive Date: 20081027
  Receipt Date: 20081027
  Transmission Date: 20090506
  Serious: Yes (Hospitalization)
  Sender: FDA-Public Use
  Company Number: None

PATIENT
  Sex: Female
  Weight: 57 kg

DRUGS (2)
  1. TAXOL [Suspect]
     Dosage: 200 MG
     Dates: start: 20081021, end: 20081022
  2. CARBOPLATIN [Suspect]
     Dosage: 570 MG
     Dates: end: 20081022

REACTIONS (2)
  - HOSPITALISATION [None]
  - UNEVALUABLE EVENT [None]
